FAERS Safety Report 21996383 (Version 1)
Quarter: 2023Q1

REPORT INFORMATION
  Report Type: Spontaneous
  Country: US (occurrence: US)
  Receive Date: 20230215
  Receipt Date: 20230215
  Transmission Date: 20230417
  Serious: No
  Sender: FDA-Public Use
  Company Number: US-MYLANLABS-2023M1014985

PATIENT
  Sex: Male

DRUGS (1)
  1. BUPRENORPHINE AND NALOXONE SUBLINGUAL FILM [Suspect]
     Active Substance: BUPRENORPHINE HYDROCHLORIDE\NALOXONE HYDROCHLORIDE
     Indication: Drug detoxification
     Dosage: 2 MILLIGRAM, QD
     Route: 060
     Dates: start: 20230127

REACTIONS (3)
  - Dizziness [Unknown]
  - Somnolence [Unknown]
  - Vomiting [Unknown]
